FAERS Safety Report 18981084 (Version 1)
Quarter: 2021Q1

REPORT INFORMATION
  Report Type: Spontaneous
  Country: US (occurrence: US)
  Receive Date: 20210305
  Receipt Date: 20210305
  Transmission Date: 20210420
  Serious: Yes (Hospitalization)
  Sender: FDA-Public Use
  Company Number: None

PATIENT
  Age: 79 Year
  Sex: Female

DRUGS (2)
  1. FLUOROURACIL 5 GM/100ML ACCORD HEALTHCARE [Suspect]
     Active Substance: FLUOROURACIL
     Indication: GASTRIC CANCER
     Dosage: ?          OTHER STRENGTH:5 GM/100ML ;OTHER DOSE:5 GM/100MG ;?
     Route: 042
     Dates: start: 20201223
  2. OXALIPLATIN 100 MG/20ML TEVA PARENTERAL MEDICINES [Suspect]
     Active Substance: OXALIPLATIN
     Indication: GASTRIC CANCER
     Dosage: ?          OTHER DOSE:100 MG/20ML;?
     Route: 042
     Dates: start: 20201223

REACTIONS (4)
  - Dysstasia [None]
  - Dysphagia [None]
  - Asthenia [None]
  - Peripheral swelling [None]

NARRATIVE: CASE EVENT DATE: 20210305
